FAERS Safety Report 5607509-3 (Version None)
Quarter: 2008Q1

REPORT INFORMATION
  Report Type: 
  Country: None (occurrence: None)
  Receive Date: 20080125
  Receipt Date: 20080109
  Transmission Date: 20080703
  Serious: Yes (Hospitalization, Congenital Anomaly, Other)
  Sender: FDA-Public Use
  Company Number: DSA_31321_2008

PATIENT
  Sex: Male

DRUGS (18)
  1. LORAZEPAM [Suspect]
     Indication: DRUG USE FOR UNKNOWN INDICATION
     Dosage: (DF TRANSPLACENTAL)
     Route: 064
     Dates: start: 19940101, end: 19940101
  2. EFFEXOR [Suspect]
     Indication: DEPRESSION
     Dosage: (37.5 MG TID TRANSPLACENTAL)
     Route: 064
     Dates: start: 19940301, end: 19940601
  3. DEXAMETHASONE TAB [Suspect]
     Indication: DRUG USE FOR UNKNOWN INDICATION
     Dosage: (DF TRANSPLACENTAL)
     Route: 064
     Dates: start: 19940101, end: 19940101
  4. ERYTHROMYCIN [Suspect]
     Indication: DRUG USE FOR UNKNOWN INDICATION
     Dosage: (DF TRANSPLACENTAL)
     Route: 064
     Dates: start: 19940101, end: 19940101
  5. HYDROCODONE BITARTRATE [Suspect]
     Indication: DRUG USE FOR UNKNOWN INDICATION
     Dosage: (DF TRANSPLACENTAL)
     Route: 064
     Dates: start: 19940101, end: 19940101
  6. IBUPROFEN [Suspect]
     Indication: DRUG USE FOR UNKNOWN INDICATION
     Dosage: (DF TRANSPLACENTAL)
     Route: 064
     Dates: start: 19940101, end: 19940101
  7. RETIN-A [Suspect]
     Indication: DRUG USE FOR UNKNOWN INDICATION
     Dosage: (DF TRANSPLACENTAL)
     Route: 064
     Dates: start: 19940101, end: 19940101
  8. ESTAZOLAM [Concomitant]
  9. AMITRIPTYLINE HCL [Concomitant]
  10. SUMATRIPTAN SUCCINATE [Concomitant]
  11. METHADONE HCL [Concomitant]
  12. CARISOPRODOL [Concomitant]
  13. HYOSCYAMINE [Concomitant]
  14. GAMMA GLOBULIN ANTI-RH [Concomitant]
  15. CEFADROXIL [Concomitant]
  16. AZITHROMYCIN [Concomitant]
  17. BECLOMETHASONE DIPROPIONATE [Concomitant]
  18. IPRATROPIUM BROMIDE [Concomitant]

REACTIONS (4)
  - DRUG EXPOSURE DURING PREGNANCY [None]
  - HERNIA CONGENITAL [None]
  - INTESTINAL PERFORATION [None]
  - NEONATAL DISORDER [None]
